FAERS Safety Report 5272125-2 (Version None)
Quarter: 2007Q1

REPORT INFORMATION
  Report Type: 
  Country: None (occurrence: None)
  Receive Date: 20070320
  Receipt Date: 20070320
  Transmission Date: 20070707
  Serious: Yes (Hospitalization)
  Sender: FDA-Public Use
  Company Number: None

PATIENT
  Sex: Male
  Weight: 75.0703 kg

DRUGS (2)
  1. CISPLATIN [Suspect]
     Indication: SMALL CELL LUNG CANCER STAGE UNSPECIFIED
     Dosage: 113MG  IV DRIP
     Route: 041
     Dates: start: 20070207, end: 20070209
  2. ETOPOSIDE [Suspect]
     Dosage: 227MG IV X 1THEN 545MG PO X 2 DAILY
     Route: 048

REACTIONS (7)
  - CHILLS [None]
  - COUGH [None]
  - MUSCULAR WEAKNESS [None]
  - MUSCULOSKELETAL PAIN [None]
  - NASAL CONGESTION [None]
  - PYREXIA [None]
  - WEIGHT DECREASED [None]
